FAERS Safety Report 7712338-0 (Version None)
Quarter: 2011Q3

REPORT INFORMATION
  Report Type: 
  Country: None (occurrence: None)
  Receive Date: 20110826
  Receipt Date: 20110818
  Transmission Date: 20111222
  Serious: Yes (Hospitalization, Disabling)
  Sender: FDA-Public Use
  Company Number: IL-ROCHE-778717

PATIENT
  Sex: Male
  Weight: 63.7 kg

DRUGS (7)
  1. HYDROXYCHLOROQUINE [Concomitant]
     Dates: start: 20100401
  2. SLOW-FE [Concomitant]
     Dates: start: 20110412, end: 20110527
  3. TOCILIZUMAB [Suspect]
     Indication: RHEUMATOID ARTHRITIS
     Route: 065
     Dates: start: 20110719
  4. PREDNISONE [Concomitant]
     Dates: start: 20110509, end: 20110522
  5. METHYLPREDNISOLONE [Suspect]
     Indication: RHEUMATOID ARTHRITIS
     Dosage: FORM: INFUSION SOLUTION, FREQUENCY: DAY 1 AND DAY 15, LAST DOSE PRIOR TO SAE: 28 OCTOBER 2010
     Route: 042
     Dates: start: 20101014
  6. OMEPRADEX [Concomitant]
     Dates: start: 20100501
  7. RITUXIMAB [Suspect]
     Indication: RHEUMATOID ARTHRITIS
     Dosage: FORM: INFUSION SOLUTION, FREQUENCY: DAY 1 AND DAY 15, LAST DOSE PRIOR TO SAE: 28 OCTOBER 2010
     Route: 042
     Dates: start: 20101014

REACTIONS (2)
  - INTERSTITIAL LUNG DISEASE [None]
  - ORGANISING PNEUMONIA [None]
